FAERS Safety Report 10329539 (Version 4)
Quarter: 2014Q4

REPORT INFORMATION
  Report Type: Report from Study
  Country: US (occurrence: US)
  Receive Date: 20140721
  Receipt Date: 20141014
  Transmission Date: 20150528
  Serious: No
  Sender: FDA-Public Use
  Company Number: US-AMGEN-USASP2014053476

PATIENT
  Age: 44 Year
  Sex: Male

DRUGS (1)
  1. ENBREL [Suspect]
     Active Substance: ETANERCEPT
     Indication: PSORIASIS
     Dosage: UNK
     Route: 065
     Dates: start: 20140601

REACTIONS (4)
  - Psoriasis [Recovered/Resolved]
  - Skin discolouration [Not Recovered/Not Resolved]
  - Skin disorder [Unknown]
  - Adverse reaction [Recovered/Resolved]

NARRATIVE: CASE EVENT DATE: 2014
